FAERS Safety Report 5028923-3 (Version None)
Quarter: 2006Q2

REPORT INFORMATION
  Report Type: 
  Country: None (occurrence: None)
  Receive Date: 20060619
  Receipt Date: 20060607
  Transmission Date: 20061013
  Serious: Yes (Other)
  Sender: FDA-Public Use
  Company Number: EG-GLAXOSMITHKLINE-B0427628A

PATIENT

DRUGS (1)
  1. FORTUM [Suspect]
     Indication: SKIN GRAFT
     Route: 065

REACTIONS (5)
  - ANAPHYLACTIC SHOCK [None]
  - BRAIN OEDEMA [None]
  - CEREBRAL ATROPHY [None]
  - PLEURAL EFFUSION [None]
  - RESPIRATORY DISTRESS [None]
